FAERS Safety Report 7200598-4 (Version None)
Quarter: 2010Q4

REPORT INFORMATION
  Report Type: 
  Country: None (occurrence: None)
  Receive Date: 20101228
  Receipt Date: 20101221
  Transmission Date: 20110411
  Serious: Yes (Death)
  Sender: FDA-Public Use
  Company Number: US-CELGENEUS-163-21880-10111689

PATIENT
  Sex: Male

DRUGS (18)
  1. REVLIMID [Suspect]
     Indication: MULTIPLE MYELOMA
     Route: 048
     Dates: start: 20100830, end: 20100101
  2. REVLIMID [Suspect]
     Route: 048
     Dates: start: 20101001, end: 20101108
  3. AVODART [Concomitant]
     Route: 065
  4. LOTENSIN [Concomitant]
     Route: 065
  5. ELAVIL [Concomitant]
     Route: 065
  6. ZOCOR [Concomitant]
     Route: 065
  7. VITAMIN D [Concomitant]
     Route: 065
  8. ASPIRIN [Concomitant]
     Route: 065
  9. PLAVIX [Concomitant]
     Route: 065
  10. PRILOSEC [Concomitant]
     Route: 065
  11. TOPROL-XL [Concomitant]
     Route: 065
  12. ISMO [Concomitant]
     Route: 065
  13. FEOSOL [Concomitant]
     Route: 065
  14. HUMALOG [Concomitant]
     Route: 065
  15. LANTUS [Concomitant]
     Route: 065
  16. MIRALAX [Concomitant]
     Route: 065
  17. FINASTERIDE [Concomitant]
     Route: 065
  18. VITAMIN D3 [Concomitant]
     Dosage: 2000 UNITS
     Route: 048

REACTIONS (2)
  - MULTI-ORGAN FAILURE [None]
  - MULTIPLE MYELOMA [None]
